FAERS Safety Report 25612138 (Version 1)
Quarter: 2025Q3

REPORT INFORMATION
  Report Type: Spontaneous
  Country: CN (occurrence: CN)
  Receive Date: 20250728
  Receipt Date: 20250728
  Transmission Date: 20251021
  Serious: Yes (Life-Threatening)
  Sender: ASTELLAS
  Company Number: CN-ASTELLAS-2025-AER-041194

PATIENT
  Age: 54 Year
  Sex: Male
  Weight: 40 kg

DRUGS (4)
  1. CRESEMBA [Suspect]
     Active Substance: ISAVUCONAZONIUM SULFATE
     Indication: Pneumonia
     Dosage: 200 MG, THREE TIMES DAILY (EVERY 8 HOURS), VIA IV DRIP (WITH 5 ML STERILE WATER FOR INJECTION + 250
     Route: 042
     Dates: start: 20250707, end: 20250708
  2. CRESEMBA [Suspect]
     Active Substance: ISAVUCONAZONIUM SULFATE
     Dosage: 200MG ONCE A DAY, VIA IV DRIP (WITH 5 ML STERILE WATER FOR INJECTION + 250 ML 0.9% SODIUM CHLORIDE I
     Route: 042
     Dates: start: 20250710
  3. WATER FOR INJECTION [Concomitant]
     Active Substance: WATER
     Indication: Product used for unknown indication
     Route: 065
     Dates: start: 20250707, end: 20250708
  4. SODIUM CHLORIDE [Concomitant]
     Active Substance: SODIUM CHLORIDE
     Indication: Product used for unknown indication
     Route: 065
     Dates: start: 20250707, end: 20250708

REACTIONS (4)
  - Blood pressure increased [Recovered/Resolved]
  - Tachycardia [Unknown]
  - Musculoskeletal stiffness [Unknown]
  - Off label use [Unknown]

NARRATIVE: CASE EVENT DATE: 20250707
